FAERS Safety Report 10728296 (Version 1)
Quarter: 2015Q1

REPORT INFORMATION
  Report Type: Report from Study
  Country: DE (occurrence: DE)
  Receive Date: 20150121
  Receipt Date: 20150121
  Transmission Date: 20150721
  Serious: Yes (Hospitalization)
  Sender: FDA-Public Use
  Company Number: PHHO2014DE014053

PATIENT
  Age: 47 Year
  Sex: Male
  Weight: 70 kg

DRUGS (3)
  1. PREDNISOLONE. [Suspect]
     Active Substance: PREDNISOLONE
     Dosage: DOSE REDUCED
     Route: 048
     Dates: start: 20141110
  2. SOM230 [Suspect]
     Active Substance: PASIREOTIDE
     Indication: THYMOMA
     Dosage: 60 MG, UNK
     Route: 030
     Dates: start: 20140425
  3. PREDNISOLONE. [Suspect]
     Active Substance: PREDNISOLONE
     Indication: THYMOMA
     Dosage: 40 MG, UNK
     Route: 048
     Dates: start: 20140420, end: 20141109

REACTIONS (3)
  - Systemic inflammatory response syndrome [Recovered/Resolved]
  - Atypical pneumonia [Recovered/Resolved]
  - Staphylococcal sepsis [Recovered/Resolved]

NARRATIVE: CASE EVENT DATE: 20141001
